FAERS Safety Report 6290967-1 (Version None)
Quarter: 2009Q3

REPORT INFORMATION
  Report Type: 
  Country: None (occurrence: None)
  Receive Date: 20090730
  Receipt Date: 20090716
  Transmission Date: 20100115
  Serious: Yes (Other)
  Sender: FDA-Public Use
  Company Number: CA-GENENTECH-283956

PATIENT
  Sex: Female

DRUGS (11)
  1. OMALIZUMAB [Suspect]
     Indication: ASTHMA
     Dosage: UNK
     Route: 058
     Dates: start: 20060101
  2. OMALIZUMAB [Suspect]
     Indication: HYPERSENSITIVITY
  3. VENTOLIN [Concomitant]
     Indication: DRUG USE FOR UNKNOWN INDICATION
  4. BENADRYL [Concomitant]
     Indication: DRUG USE FOR UNKNOWN INDICATION
  5. SYMBICORT [Concomitant]
     Indication: DRUG USE FOR UNKNOWN INDICATION
  6. REACTINE [Concomitant]
     Indication: DRUG USE FOR UNKNOWN INDICATION
  7. FLONASE [Concomitant]
     Indication: DRUG USE FOR UNKNOWN INDICATION
  8. TYLENOL (CAPLET) [Concomitant]
     Indication: DRUG USE FOR UNKNOWN INDICATION
  9. NONSTEROIDAL ANTIINFLAMMATORY AGENT [Concomitant]
     Indication: DRUG USE FOR UNKNOWN INDICATION
  10. AVAMYS [Concomitant]
     Indication: DRUG USE FOR UNKNOWN INDICATION
  11. PREVACID [Concomitant]
     Indication: DRUG USE FOR UNKNOWN INDICATION

REACTIONS (1)
  - GLOMERULAR FILTRATION RATE DECREASED [None]
